FAERS Safety Report 23657303 (Version 1)
Quarter: 2024Q1

REPORT INFORMATION
  Report Type: Spontaneous
  Country: CO (occurrence: CO)
  Receive Date: 20240321
  Receipt Date: 20240321
  Transmission Date: 20240410
  Serious: Yes (Hospitalization)
  Sender: FDA-Public Use
  Company Number: CO-JNJFOC-20240342488

PATIENT
  Age: 5 Decade
  Sex: Male
  Weight: 98 kg

DRUGS (6)
  1. RISPERDAL [Suspect]
     Active Substance: RISPERIDONE
     Indication: Schizoaffective disorder
     Dosage: LAST APPLICATION WITH RISPERIDONE ON 08-MAR-2024
     Route: 048
     Dates: start: 2022
  2. QUETIAPINE [Concomitant]
     Active Substance: QUETIAPINE
     Dosage: 1 AT NIGHT
  3. RISPERIDONE [Concomitant]
     Active Substance: RISPERIDONE
     Dosage: EVERY 12 HOURS
  4. BIPERIDEN [Concomitant]
     Active Substance: BIPERIDEN
     Dosage: 2 MG TWO IN THE MORNING
  5. VALPROATE SODIUM [Concomitant]
     Active Substance: VALPROATE SODIUM
     Dosage: 2 TABLETS EVERY 12 HOURS
  6. LITHIUM CARBONATE [Concomitant]
     Active Substance: LITHIUM CARBONATE
     Dosage: 300 MG AT DINNER 4 TABLETS.

REACTIONS (2)
  - Schizoaffective disorder [Recovering/Resolving]
  - Living in residential institution [Unknown]

NARRATIVE: CASE EVENT DATE: 20230101
